FAERS Safety Report 13389899 (Version 1)
Quarter: 2017Q1

REPORT INFORMATION
  Report Type: Other
  Country: US (occurrence: US)
  Receive Date: 20170331
  Receipt Date: 20170331
  Transmission Date: 20170429
  Serious: Yes (Other)
  Sender: FDA-Public Use
  Company Number: US-SHIRE-US201705496

PATIENT
  Age: 95 Year
  Sex: Female

DRUGS (1)
  1. XIIDRA [Suspect]
     Active Substance: LIFITEGRAST
     Indication: DRY EYE
     Dosage: UNK, 2X/DAY:BID
     Route: 047
     Dates: start: 20170222, end: 20170308

REACTIONS (2)
  - Instillation site pain [Recovered/Resolved]
  - Keratitis [Unknown]

NARRATIVE: CASE EVENT DATE: 20170222
